FAERS Safety Report 9716222 (Version 1)
Quarter: 2013Q4

REPORT INFORMATION
  Report Type: Spontaneous
  Country: PL (occurrence: PL)
  Receive Date: 20131127
  Receipt Date: 20131127
  Transmission Date: 20140711
  Serious: Yes (Other)
  Sender: FDA-Public Use
  Company Number: PL-ASTELLAS-2013EU010412

PATIENT
  Age: 67 Year
  Sex: Male
  Weight: 96.5 kg

DRUGS (3)
  1. BETMIGA [Suspect]
     Indication: HYPERTONIC BLADDER
     Dosage: 50 MG, UID/QD
     Route: 048
     Dates: start: 20130927, end: 20131024
  2. LACIPIL [Concomitant]
     Indication: CARDIAC DISORDER
     Dosage: 4 MG, UID/QD
     Route: 048
  3. XARELTO [Concomitant]
     Indication: CARDIAC DISORDER
     Dosage: 20 MG, UID/QD
     Route: 048

REACTIONS (2)
  - Haematuria [Not Recovered/Not Resolved]
  - Cystitis [Recovering/Resolving]
